FAERS Safety Report 23856917 (Version 1)
Quarter: 2024Q2

REPORT INFORMATION
  Report Type: Spontaneous
  Country: SK (occurrence: SK)
  Receive Date: 20240515
  Receipt Date: 20240515
  Transmission Date: 20240716
  Serious: Yes (Other)
  Sender: FDA-Public Use
  Company Number: SK-009507513-2405SVK003728

PATIENT
  Sex: Male

DRUGS (3)
  1. KEYTRUDA [Suspect]
     Active Substance: PEMBROLIZUMAB
     Indication: Metastatic malignant melanoma
     Dosage: (ALREADY RECEIVED FIFTH CYCLE OF TREATMENT)
  2. METOCLOPRAMIDE HYDROCHLORIDE [Concomitant]
     Active Substance: METOCLOPRAMIDE HYDROCHLORIDE
     Indication: Premedication
  3. BISULEPIN [Concomitant]
     Active Substance: BISULEPIN
     Indication: Premedication

REACTIONS (5)
  - Syncope [Unknown]
  - Erythema [Unknown]
  - Throat tightness [Unknown]
  - Dyspnoea [Unknown]
  - Chest discomfort [Unknown]
